FAERS Safety Report 10393985 (Version 2)
Quarter: 2014Q4

REPORT INFORMATION
  Report Type: Spontaneous
  Country: SE (occurrence: SE)
  Receive Date: 20140819
  Receipt Date: 20141224
  Transmission Date: 20150528
  Serious: Yes (Hospitalization)
  Sender: FDA-Public Use
  Company Number: SE-PFIZER INC-2014228640

PATIENT
  Age: 19 Year
  Sex: Male

DRUGS (6)
  1. ZOLPIDEM [Suspect]
     Active Substance: ZOLPIDEM\ZOLPIDEM TARTRATE
     Dosage: 2 PIECES
     Route: 048
     Dates: start: 20130323, end: 20130323
  2. PRONAXEN [Concomitant]
     Active Substance: NAPROXEN
  3. DOLCONTIN [Suspect]
     Active Substance: MORPHINE
     Dosage: 10-20 TABLETS
     Route: 048
     Dates: start: 20130323, end: 20130323
  4. PROMETHAZINE [Suspect]
     Active Substance: PROMETHAZINE\PROMETHAZINE HYDROCHLORIDE
     Dosage: 10-15 TABLETS
     Route: 048
     Dates: start: 20130323, end: 20130323
  5. METAMINA [Concomitant]
     Indication: ATTENTION DEFICIT/HYPERACTIVITY DISORDER
  6. MORPHINE SULFATE. [Suspect]
     Active Substance: MORPHINE SULFATE
     Dosage: 10 MG, UNK
     Route: 048
     Dates: start: 20130323, end: 20130323

REACTIONS (4)
  - Depressed level of consciousness [Recovered/Resolved]
  - Agitation [Recovered/Resolved]
  - Toxicity to various agents [Recovered/Resolved]
  - Aggression [Recovered/Resolved]

NARRATIVE: CASE EVENT DATE: 20130323
